FAERS Safety Report 4937250-1 (Version None)
Quarter: 2006Q1

REPORT INFORMATION
  Report Type: 
  Country: None (occurrence: None)
  Receive Date: 20060309
  Receipt Date: 20060302
  Transmission Date: 20060701
  Serious: Yes (Other)
  Sender: FDA-Public Use
  Company Number: US-JNJFOC-20060300855

PATIENT
  Sex: Female
  Weight: 86.18 kg

DRUGS (2)
  1. ORTHO EVRA [Suspect]
     Indication: MENSTRUAL DISORDER
     Route: 062
     Dates: end: 20040825
  2. ORTHO EVRA [Suspect]
     Indication: CONTRACEPTION
     Route: 062
     Dates: end: 20040825

REACTIONS (4)
  - ABORTION SPONTANEOUS [None]
  - DRUG EXPOSURE DURING PREGNANCY [None]
  - OFF LABEL USE [None]
  - UNINTENDED PREGNANCY [None]
